FAERS Safety Report 5997590-4 (Version None)
Quarter: 2008Q4

REPORT INFORMATION
  Report Type: 
  Country: None (occurrence: None)
  Receive Date: 20081212
  Receipt Date: 20081114
  Transmission Date: 20090506
  Serious: No
  Sender: FDA-Public Use
  Company Number: US-ABBOTT-08P-163-0488007-00

PATIENT
  Sex: Female
  Weight: 74.91 kg

DRUGS (3)
  1. HUMIRA [Suspect]
     Indication: PSORIASIS
     Route: 058
     Dates: start: 20081029, end: 20081113
  2. CLOXACILLIN SODIUM [Concomitant]
     Indication: PSORIASIS
     Route: 061
  3. UNKNOWN BIRTH CONTROL PILL [Concomitant]
     Indication: CONTRACEPTION
     Dosage: UNKNOWN

REACTIONS (4)
  - DRUG INEFFECTIVE [None]
  - INJECTION SITE HAEMATOMA [None]
  - INJECTION SITE NODULE [None]
  - PROCEDURAL COMPLICATION [None]
